FAERS Safety Report 15924447 (Version 1)
Quarter: 2019Q1

REPORT INFORMATION
  Report Type: Report from Study
  Country: US (occurrence: US)
  Receive Date: 20190205
  Receipt Date: 20190205
  Transmission Date: 20190417
  Serious: Yes (Hospitalization, Other)
  Sender: FDA-Public Use
  Company Number: US-ACTELION-A-NJ2017-164266

PATIENT
  Age: 88 Year
  Sex: Female

DRUGS (4)
  1. UPTRAVI [Suspect]
     Active Substance: SELEXIPAG
     Dosage: 600 MCG, BID
     Route: 048
  2. UPTRAVI [Suspect]
     Active Substance: SELEXIPAG
     Dosage: 200 MCG, BID
     Route: 048
     Dates: start: 20171203
  3. UPTRAVI [Suspect]
     Active Substance: SELEXIPAG
     Indication: PULMONARY ARTERIAL HYPERTENSION
     Dosage: 400 MCG, BID
     Route: 048
     Dates: start: 20171127, end: 20190116
  4. UPTRAVI [Suspect]
     Active Substance: SELEXIPAG
     Dosage: 200/400 MCG, BID
     Route: 048
     Dates: start: 20171127

REACTIONS (13)
  - Condition aggravated [Unknown]
  - Palpitations [Unknown]
  - Dyspnoea [Unknown]
  - Back pain [Unknown]
  - Abdominal distension [Unknown]
  - Myalgia [Unknown]
  - Muscular weakness [Unknown]
  - Weight increased [Unknown]
  - Movement disorder [Unknown]
  - Abdominal pain upper [Unknown]
  - Pleural effusion [Unknown]
  - Swelling face [Unknown]
  - Diarrhoea [Unknown]

NARRATIVE: CASE EVENT DATE: 20171203
